FAERS Safety Report 7931490-5 (Version None)
Quarter: 2011Q4

REPORT INFORMATION
  Report Type: 
  Country: None (occurrence: None)
  Receive Date: 20111121
  Receipt Date: 20111121
  Transmission Date: 20120403
  Serious: Yes (Life-Threatening)
  Sender: FDA-Public Use
  Company Number: None

PATIENT
  Age: 37 Year
  Sex: Male

DRUGS (1)
  1. OXCARBAZEPINE [Suspect]
     Indication: MOOD ALTERED
     Dosage: 900 MG
     Route: 048
     Dates: start: 20110511, end: 20111010

REACTIONS (3)
  - LEUKOPENIA [None]
  - NEUTROPENIA [None]
  - TREATMENT NONCOMPLIANCE [None]
